FAERS Safety Report 23769167 (Version 1)
Quarter: 2024Q2

REPORT INFORMATION
  Report Type: Spontaneous
  Country: FR (occurrence: FR)
  Receive Date: 20240422
  Receipt Date: 20240422
  Transmission Date: 20240716
  Serious: Yes (Life-Threatening)
  Sender: FDA-Public Use
  Company Number: None

PATIENT
  Age: 72 Year
  Sex: Male

DRUGS (11)
  1. DEXAMETHASONE [Suspect]
     Active Substance: DEXAMETHASONE
     Indication: Adenocarcinoma of colon
     Dosage: 20 MG
     Route: 042
     Dates: start: 20240108, end: 20240318
  2. HYDROCHLOROTHIAZIDE\VALSARTAN [Suspect]
     Active Substance: HYDROCHLOROTHIAZIDE\VALSARTAN
     Indication: Hypertension
     Dosage: 1 DOSAGE FORM, QD
     Route: 048
     Dates: end: 20240322
  3. ONDANSETRON [Suspect]
     Active Substance: ONDANSETRON
     Indication: Prophylaxis of nausea and vomiting
     Dosage: 8 MG
     Route: 048
     Dates: start: 20240108, end: 20240318
  4. METFORMIN [Suspect]
     Active Substance: METFORMIN HYDROCHLORIDE
     Indication: Type 2 diabetes mellitus
     Dosage: 3 G, QD
     Route: 048
     Dates: end: 20240322
  5. FUNGIZONE [Suspect]
     Active Substance: AMPHOTERICIN B
     Indication: Oral fungal infection
     Dosage: UNK
     Route: 048
     Dates: start: 202403, end: 20240322
  6. OXALIPLATIN [Suspect]
     Active Substance: OXALIPLATIN
     Indication: Adenocarcinoma of colon
     Dosage: 150 MG, CYCLIC
     Route: 042
     Dates: start: 20240108, end: 20240318
  7. FLUOROURACIL [Suspect]
     Active Substance: FLUOROURACIL
     Indication: Adenocarcinoma of colon
     Dosage: 4250 MG, CYCLIC
     Route: 042
     Dates: start: 20240108, end: 20240318
  8. AMLODIPINE [Suspect]
     Active Substance: AMLODIPINE BESYLATE
     Indication: Hypertension
     Dosage: 10 MG, QD
     Route: 048
     Dates: end: 20240322
  9. SULPIRIDE [Suspect]
     Active Substance: SULPIRIDE
     Indication: Type 2 diabetes mellitus
     Dosage: 150 MG, QD
     Route: 048
     Dates: start: 202403, end: 20240322
  10. APREPITANT [Suspect]
     Active Substance: APREPITANT
     Indication: Prophylaxis of nausea and vomiting
     Dosage: 285 MG, CYCLIC
     Route: 048
     Dates: start: 20240108, end: 20240320
  11. GLYBURIDE [Concomitant]
     Active Substance: GLYBURIDE
     Indication: Product used for unknown indication
     Dosage: 7.5 MG, QD
     Route: 048
     Dates: end: 20240322

REACTIONS (2)
  - Coma [Not Recovered/Not Resolved]
  - Ketoacidosis [Not Recovered/Not Resolved]

NARRATIVE: CASE EVENT DATE: 20240322
